FAERS Safety Report 21529374 (Version 1)
Quarter: 2022Q4

REPORT INFORMATION
  Report Type: Spontaneous
  Country: CA (occurrence: CA)
  Receive Date: 20221031
  Receipt Date: 20221031
  Transmission Date: 20230113
  Serious: Yes (Other)
  Sender: FDA-Public Use
  Company Number: CA-AstraZeneca-2022A352087

PATIENT
  Age: 51 Year
  Sex: Female

DRUGS (1)
  1. TRASTUZUMAB DERUXTECAN [Suspect]
     Active Substance: TRASTUZUMAB DERUXTECAN
     Indication: HER2 positive breast cancer
     Dosage: 4.4 MG/KG, ONCE EVERY 3 WK
     Route: 042

REACTIONS (3)
  - Cardiac disorder [Unknown]
  - Ejection fraction decreased [Unknown]
  - Pneumonitis [Unknown]
